FAERS Safety Report 5254269-4 (Version None)
Quarter: 2007Q1

REPORT INFORMATION
  Report Type: 
  Country: None (occurrence: None)
  Receive Date: 20070302
  Receipt Date: 20070228
  Transmission Date: 20070707
  Serious: Yes (Other)
  Sender: FDA-Public Use
  Company Number: US-GLAXOSMITHKLINE-A0641546A

PATIENT
  Age: 16 Year
  Sex: Female

DRUGS (1)
  1. LAMICTAL [Suspect]
     Indication: CONVULSION
     Dosage: 2MG THREE TIMES PER DAY
     Route: 048
     Dates: start: 20060301

REACTIONS (3)
  - AMENORRHOEA [None]
  - CONVULSION [None]
  - ULCER [None]
